FAERS Safety Report 9105325 (Version 2)
Quarter: 2013Q2

REPORT INFORMATION
  Report Type: Spontaneous
  Country: GB (occurrence: GB)
  Receive Date: 20130220
  Receipt Date: 20130502
  Transmission Date: 20140414
  Serious: Yes (Hospitalization)
  Sender: FDA-Public Use
  Company Number: GB-BRISTOL-MYERS SQUIBB COMPANY-17375080

PATIENT
  Age: 9 Decade
  Sex: Female

DRUGS (2)
  1. ONGLYZA TABS [Suspect]
     Dosage: 4-5 MONTHS
  2. METFORMIN HCL [Suspect]

REACTIONS (3)
  - Glomerular filtration rate decreased [Unknown]
  - Weight decreased [Unknown]
  - Drug ineffective [Unknown]
